FAERS Safety Report 8890547 (Version 1)
Quarter: 2012Q4

REPORT INFORMATION
  Report Type: 
  Country: CH (occurrence: CH)
  Receive Date: 20121106
  Receipt Date: 20121106
  Transmission Date: 20130627
  Serious: Yes (Death, Hospitalization)
  Sender: FDA-Public Use
  Company Number: CH-WATSON-2012-18567

PATIENT
  Age: 43 Year

DRUGS (5)
  1. CYCLOSPORINE (WATSON LABORATORIES) [Suspect]
     Indication: IMMUNOSUPPRESSION
     Dosage: 60 mg, bid
     Route: 065
  2. CYCLOSPORINE (WATSON LABORATORIES) [Suspect]
     Indication: LUNG TRANSPLANT
  3. FOSCAVIR [Suspect]
     Indication: CYTOMEGALOVIRUS INFECTION
     Dosage: 3600 mg, daily
     Route: 042
  4. FOSCAVIR [Suspect]
     Dosage: 3600 mg, bid
     Route: 042
  5. AMPHOTERICIN B [Suspect]
     Indication: ANTIFUNGAL PROPHYLAXIS
     Dosage: 10 mg, UNK
     Route: 055

REACTIONS (7)
  - Multi-organ failure [Fatal]
  - Acute endocarditis [Fatal]
  - Renal tubular necrosis [Fatal]
  - Crystal nephropathy [Fatal]
  - Granuloma [Fatal]
  - Potentiating drug interaction [Fatal]
  - Toxicity to various agents [Fatal]
